FAERS Safety Report 22654666 (Version 1)
Quarter: 2023Q2

REPORT INFORMATION
  Report Type: Spontaneous
  Country: US (occurrence: US)
  Receive Date: 20230629
  Receipt Date: 20230629
  Transmission Date: 20230721
  Serious: No
  Sender: FDA-Public Use
  Company Number: US-AMGEN-USASP2023113026

PATIENT
  Age: 78 Year
  Sex: Male
  Weight: 72.562 kg

DRUGS (2)
  1. PROCRIT [Suspect]
     Active Substance: ERYTHROPOIETIN
     Indication: Chronic kidney disease
     Dosage: UNK
     Route: 065
     Dates: start: 20230623
  2. PROCRIT [Suspect]
     Active Substance: ERYTHROPOIETIN
     Indication: Anaemia

REACTIONS (2)
  - Blood pressure increased [Unknown]
  - Blood glucose increased [Unknown]

NARRATIVE: CASE EVENT DATE: 20230601
